FAERS Safety Report 22859713 (Version 5)
Quarter: 2024Q2

REPORT INFORMATION
  Report Type: Report from Study
  Country: US (occurrence: US)
  Receive Date: 20230824
  Receipt Date: 20240603
  Transmission Date: 20240716
  Serious: No
  Sender: FDA-Public Use
  Company Number: US-002147023-NVSC2023US184213

PATIENT
  Age: 69 Year
  Sex: Female

DRUGS (4)
  1. ILARIS [Suspect]
     Active Substance: CANAKINUMAB
     Indication: Still^s disease
     Dosage: 240 MG, Q4W
     Route: 058
     Dates: start: 20201223
  2. ILARIS [Suspect]
     Active Substance: CANAKINUMAB
     Dosage: 240 MG, Q4W
     Route: 058
     Dates: start: 20220915
  3. ILARIS [Suspect]
     Active Substance: CANAKINUMAB
     Dosage: 240 MG, OTHER (EVERY 4 WEEKS)
     Route: 058
  4. AMOXICILLIN [Concomitant]
     Active Substance: AMOXICILLIN
     Indication: Product used for unknown indication
     Route: 065

REACTIONS (9)
  - Balance disorder [Unknown]
  - Gait disturbance [Unknown]
  - Clumsiness [Unknown]
  - Inappropriate schedule of product administration [Unknown]
  - Upper respiratory tract infection [Unknown]
  - Sinusitis [Unknown]
  - Nasal congestion [Unknown]
  - Rhinitis [Unknown]
  - Pain in extremity [Unknown]

NARRATIVE: CASE EVENT DATE: 20230819
